FAERS Safety Report 4374160-5 (Version None)
Quarter: 2004Q2

REPORT INFORMATION
  Report Type: 
  Country: None (occurrence: None)
  Receive Date: 20040607
  Receipt Date: 20031015
  Transmission Date: 20050107
  Serious: Yes (Hospitalization, Disabling)
  Sender: FDA-Public Use
  Company Number: FR-MERCK-0310FRA00043

PATIENT
  Age: 60 Year
  Sex: Male

DRUGS (8)
  1. ALLOPURINOL [Concomitant]
     Route: 048
  2. BUMETANIDE [Concomitant]
     Route: 048
  3. COLCHICINE [Concomitant]
     Route: 048
  4. FLUINDIONE [Concomitant]
     Route: 048
  5. HYDROQUINIDINE HYDROCHLORIDE [Concomitant]
     Route: 048
  6. PERINDOPRIL ERBUMINE [Concomitant]
     Route: 048
  7. ZOCOR [Suspect]
     Indication: HYPERCHOLESTEROLAEMIA
     Route: 048
     Dates: start: 20020101, end: 20030101
  8. VERAPAMIL HYDROCHLORIDE [Concomitant]
     Route: 048

REACTIONS (5)
  - BLOOD CREATINE PHOSPHOKINASE INCREASED [None]
  - MUSCULAR WEAKNESS [None]
  - MYOPATHY [None]
  - NERVOUS SYSTEM DISORDER [None]
  - WEIGHT DECREASED [None]
